FAERS Safety Report 6913789-4 (Version None)
Quarter: 2010Q3

REPORT INFORMATION
  Report Type: 
  Country: None (occurrence: None)
  Receive Date: 20100809
  Receipt Date: 20100805
  Transmission Date: 20110219
  Serious: Yes (Life-Threatening)
  Sender: FDA-Public Use
  Company Number: FR-ROCHE-700946

PATIENT
  Sex: Male

DRUGS (23)
  1. ROCEPHIN [Suspect]
     Indication: PRODUCT USED FOR UNKNOWN INDICATION
     Route: 042
     Dates: start: 20100119, end: 20100227
  2. MIDAZOLAM HCL [Suspect]
     Indication: SEDATION
     Route: 042
     Dates: start: 20100119
  3. MIDAZOLAM HCL [Suspect]
     Route: 042
  4. PROPOFOL [Suspect]
     Indication: SEDATION
     Route: 042
     Dates: start: 20100124
  5. PROPOFOL [Suspect]
     Route: 042
     Dates: start: 20100128
  6. PROPOFOL [Suspect]
     Route: 042
     Dates: start: 20100129, end: 20100202
  7. VFEND [Suspect]
     Route: 042
     Dates: start: 20100119, end: 20100202
  8. SUFENTANIL [Suspect]
     Indication: SEDATION
     Route: 042
     Dates: start: 20100119
  9. SUFENTANIL [Suspect]
     Route: 042
  10. SUFENTANIL [Suspect]
     Route: 042
     Dates: start: 20100124
  11. ATRACURIUM [Suspect]
     Indication: PRODUCT USED FOR UNKNOWN INDICATION
     Route: 042
     Dates: start: 20100201, end: 20100202
  12. ATRACURIUM [Suspect]
     Route: 042
     Dates: start: 20100203, end: 20100207
  13. NIMBEX [Suspect]
     Indication: PRODUCT USED FOR UNKNOWN INDICATION
     Route: 042
     Dates: start: 20100119, end: 20100201
  14. PANCURONIUM BROMIDE [Suspect]
     Indication: PRODUCT USED FOR UNKNOWN INDICATION
     Route: 042
     Dates: start: 20100201, end: 20100202
  15. FLAGYL [Suspect]
     Indication: PRODUCT USED FOR UNKNOWN INDICATION
     Route: 042
     Dates: start: 20100125, end: 20100219
  16. KETAMINE [Concomitant]
     Dates: start: 20090202, end: 20090207
  17. METHYLPREDNISOLONE [Concomitant]
     Route: 042
     Dates: start: 20100125, end: 20100202
  18. METHYLPREDNISOLONE [Concomitant]
     Route: 042
  19. METHYLPREDNISOLONE [Concomitant]
     Route: 042
  20. METHYLPREDNISOLONE [Concomitant]
     Route: 042
  21. BRICANYL [Concomitant]
  22. LOVENOX [Concomitant]
     Dates: end: 20100203
  23. HUMALOG [Concomitant]
     Dosage: CALIPARINE-HUMALOG-OLICLINOMEL N7
     Dates: start: 20100123, end: 20100208

REACTIONS (3)
  - PROPOFOL INFUSION SYNDROME [None]
  - RENAL FAILURE ACUTE [None]
  - RHABDOMYOLYSIS [None]
